FAERS Safety Report 5845699-8 (Version None)
Quarter: 2008Q3

REPORT INFORMATION
  Report Type: 
  Country: None (occurrence: None)
  Receive Date: 20080814
  Receipt Date: 20080804
  Transmission Date: 20090109
  Serious: Yes (Other)
  Sender: FDA-Public Use
  Company Number: PHHY2008BR17866

PATIENT
  Sex: Female

DRUGS (1)
  1. CODATEN [Suspect]
     Indication: RENAL COLIC
     Dosage: 50 MG, 2 TABLET AT ONCE
     Route: 048

REACTIONS (3)
  - ABORTION [None]
  - DRUG EXPOSURE DURING PREGNANCY [None]
  - HAEMORRHAGE [None]
